FAERS Safety Report 13646801 (Version 1)
Quarter: 2017Q2

REPORT INFORMATION
  Report Type: Spontaneous
  Country: US (occurrence: US)
  Receive Date: 20170613
  Receipt Date: 20170613
  Transmission Date: 20170830
  Serious: No
  Sender: FDA-Public Use
  Company Number: None

PATIENT
  Age: 65 Year
  Sex: Male
  Weight: 81.72 kg

DRUGS (1)
  1. LATANOPROST. [Suspect]
     Active Substance: LATANOPROST
     Indication: GLAUCOMA
     Dosage: 1 DROP BOTH EYES EVERY EVENING
     Route: 047
     Dates: start: 20150403

REACTIONS (3)
  - Influenza like illness [None]
  - Headache [None]
  - Ocular hyperaemia [None]

NARRATIVE: CASE EVENT DATE: 20170528
